FAERS Safety Report 10164069 (Version 1)
Quarter: 2014Q2

REPORT INFORMATION
  Report Type: Spontaneous
  Country: US (occurrence: US)
  Receive Date: 20140510
  Receipt Date: 20140510
  Transmission Date: 20141212
  Serious: No
  Sender: FDA-Public Use
  Company Number: US-BRISTOL-MYERS SQUIBB COMPANY-19892827

PATIENT
  Age: 60 Year
  Sex: Male

DRUGS (3)
  1. BYETTA [Suspect]
     Indication: TYPE 2 DIABETES MELLITUS
     Route: 058
  2. GLYBURIDE + METFORMIN HCL [Suspect]
     Dosage: 2.5/500 TWO PILLS BID
  3. NOVOLOG [Suspect]
     Dosage: NOVOLOG 70/30 BID;FLAXPEN AS NEEDED

REACTIONS (1)
  - Drug ineffective [Unknown]
